FAERS Safety Report 17539101 (Version 1)
Quarter: 2020Q1

REPORT INFORMATION
  Report Type: Spontaneous
  Country: US (occurrence: US)
  Receive Date: 20200313
  Receipt Date: 20200313
  Transmission Date: 20200409
  Serious: Yes (Death)
  Sender: FDA-Public Use
  Company Number: None

PATIENT
  Age: 67 Year
  Sex: Female
  Weight: 102.1 kg

DRUGS (1)
  1. ANDEXXA [Suspect]
     Active Substance: ANDEXANET ALFA
     Indication: PROCOAGULANT THERAPY
     Route: 042
     Dates: start: 20200124, end: 20200124

REACTIONS (3)
  - Intracranial pressure increased [None]
  - Hypoxic-ischaemic encephalopathy [None]
  - Nervous system disorder [None]

NARRATIVE: CASE EVENT DATE: 20200124
